FAERS Safety Report 18954977 (Version 5)
Quarter: 2022Q1

REPORT INFORMATION
  Report Type: Spontaneous
  Country: SE (occurrence: SE)
  Receive Date: 20210301
  Receipt Date: 20220328
  Transmission Date: 20220423
  Serious: Yes (Other)
  Sender: FDA-Public Use
  Company Number: SE-ALLERGAN-2107528US

PATIENT
  Sex: Female

DRUGS (3)
  1. BOTOX [Suspect]
     Active Substance: ONABOTULINUMTOXINA
     Indication: Excessive gingival display
     Dosage: UNK UNK, SINGLE
     Dates: start: 2018, end: 2018
  2. DEOXYCHOLIC ACID [Suspect]
     Active Substance: DEOXYCHOLIC ACID
     Indication: Fat tissue increased
     Dosage: UNK, SINGLE
     Route: 058
     Dates: start: 202004, end: 202004
  3. DEOXYCHOLIC ACID [Suspect]
     Active Substance: DEOXYCHOLIC ACID
     Dosage: UNK, SINGLE
     Route: 058
     Dates: start: 2018, end: 2018

REACTIONS (10)
  - VIIth nerve injury [Not Recovered/Not Resolved]
  - Skin laxity [Not Recovered/Not Resolved]
  - Facial paralysis [Recovered/Resolved]
  - Product administered at inappropriate site [Unknown]
  - Off label use [Unknown]
  - Swelling face [Unknown]
  - Facial asymmetry [Not Recovered/Not Resolved]
  - Premature ageing [Unknown]
  - Skin wrinkling [Not Recovered/Not Resolved]
  - Product availability issue [Unknown]

NARRATIVE: CASE EVENT DATE: 20180101
